FAERS Safety Report 4317687-4 (Version None)
Quarter: 2004Q1

REPORT INFORMATION
  Report Type: 
  Country: None (occurrence: None)
  Receive Date: 20040315
  Receipt Date: 20040303
  Transmission Date: 20041129
  Serious: Yes (Hospitalization)
  Sender: FDA-Public Use
  Company Number: IL-BRISTOL-MYERS SQUIBB COMPANY-12526679

PATIENT
  Age: 67 Year
  Sex: Male

DRUGS (4)
  1. METFORMIN HCL [Suspect]
     Indication: DIABETES MELLITUS NON-INSULIN-DEPENDENT
  2. REPAGLINIDE [Suspect]
  3. NITRATES [Concomitant]
  4. CALCIUM CHANNEL BLOCKER [Concomitant]

REACTIONS (1)
  - ENCEPHALOPATHY [None]
